FAERS Safety Report 8886762 (Version 6)
Quarter: 2013Q2

REPORT INFORMATION
  Report Type: Spontaneous
  Country: US (occurrence: US)
  Receive Date: 20121105
  Receipt Date: 20130429
  Transmission Date: 20140414
  Serious: Yes (Hospitalization, Disabling, Other)
  Sender: FDA-Public Use
  Company Number: US-009507513-1210USA014652

PATIENT
  Sex: Female
  Weight: 52.61 kg

DRUGS (9)
  1. FOSAMAX [Suspect]
     Indication: OSTEOPENIA
     Dosage: 70 MG, UNK
     Route: 048
     Dates: start: 20071013
  2. FOSAMAX [Suspect]
     Indication: OSTEOPENIA
     Dosage: 70 MG, UNK
     Dates: start: 20100403
  3. BONIVA [Suspect]
     Indication: OSTEOPOROSIS
     Dosage: UNK
     Dates: start: 200606, end: 201202
  4. BONIVA [Suspect]
     Indication: OSTEOPENIA
  5. ALENDRONATE SODIUM [Suspect]
     Indication: OSTEOPENIA
     Dosage: 70 MG, UNK
     Route: 048
     Dates: start: 20090924
  6. ALENDRONATE SODIUM [Suspect]
     Indication: OSTEOPENIA
     Dosage: 70 UNK, UNK
     Route: 048
     Dates: start: 20080403, end: 201205
  7. ALENDRONATE SODIUM [Suspect]
     Indication: OSTEOPOROSIS
     Dosage: 70 MG, UNK
     Route: 048
     Dates: start: 20090621, end: 20090911
  8. ALENDRONATE SODIUM [Suspect]
     Indication: OSTEOPOROSIS
     Dosage: 70 MG, UNK
     Route: 048
     Dates: start: 20080718, end: 20090525
  9. VITAMINS (UNSPECIFIED) [Concomitant]
     Dosage: UNK
     Dates: start: 2000

REACTIONS (39)
  - Femur fracture [Recovered/Resolved]
  - Low turnover osteopathy [Unknown]
  - Femur fracture [Unknown]
  - Osteoporosis [Unknown]
  - Stress fracture [Unknown]
  - Intramedullary rod insertion [Unknown]
  - Anaemia postoperative [Unknown]
  - Renal failure chronic [Unknown]
  - Hypoxia [Recovered/Resolved]
  - Fall [Unknown]
  - Adverse drug reaction [Unknown]
  - Fall [Unknown]
  - Intraductal proliferative breast lesion [Unknown]
  - Constipation [Unknown]
  - Nausea [Unknown]
  - Breast lump removal [Unknown]
  - Haematuria [Unknown]
  - Cellulitis [Unknown]
  - Abscess limb [Unknown]
  - Stress urinary incontinence [Unknown]
  - Road traffic accident [Unknown]
  - Hypertension [Unknown]
  - Hyperglycaemia [Unknown]
  - Intervertebral disc degeneration [Unknown]
  - Osteoarthritis [Unknown]
  - Hypercholesterolaemia [Unknown]
  - Asthma [Unknown]
  - Varicose vein [Unknown]
  - Rhinitis allergic [Unknown]
  - Lacunar infarction [Unknown]
  - Fracture delayed union [Recovered/Resolved]
  - Rib fracture [Unknown]
  - Radiotherapy to breast [Unknown]
  - Azotaemia [Unknown]
  - Depression [Unknown]
  - Rib fracture [Unknown]
  - Vitamin D deficiency [Unknown]
  - Back pain [Unknown]
  - Muscle spasms [Unknown]
